FAERS Safety Report 9182081 (Version 1)
Quarter: 2012Q4

REPORT INFORMATION
  Report Type: 
  Country: US (occurrence: US)
  Receive Date: 20121030
  Receipt Date: 20121030
  Transmission Date: 20130627
  Serious: Yes (Hospitalization, Other)
  Sender: FDA-Public Use
  Company Number: US-BRISTOL-MYERS SQUIBB COMPANY-17052150

PATIENT
  Age: 65 Year
  Sex: Male
  Weight: 98 kg

DRUGS (3)
  1. GLUCOPHAGE [Suspect]
     Indication: BLOOD GLUCOSE
     Dosage: Initially 600 mg 2/day,increased to 3/day.
     Dates: end: 201209
  2. NEURONTIN [Suspect]
     Indication: NEURALGIA
     Dosage: Initially 600 mg 2/day,increased to 3/day.
  3. PROTONIX [Suspect]
     Indication: GASTRIC DISORDER

REACTIONS (3)
  - Cardiac disorder [Unknown]
  - Hyperhidrosis [Unknown]
  - Weight increased [Unknown]
